FAERS Safety Report 5107772-1 (Version None)
Quarter: 2006Q3

REPORT INFORMATION
  Report Type: 
  Country: None (occurrence: None)
  Receive Date: 20060914
  Receipt Date: 20060901
  Transmission Date: 20061208
  Serious: Yes (Life-Threatening, Disabling)
  Sender: FDA-Public Use
  Company Number: S06-GER-03759-01

PATIENT
  Sex: Male

DRUGS (3)
  1. ESCITALOPRAM OXALATE [Suspect]
     Dosage: 5 MG QD
  2. ESCITALOPRAM OXALATE [Suspect]
     Dosage: 10 MG QD
     Dates: start: 20051220
  3. ESCITALOPRAM OXALATE [Suspect]
     Dosage: 5 MG QD
     Dates: start: 20051215, end: 20051219

REACTIONS (5)
  - FALL [None]
  - PARAPLEGIA [None]
  - PHARMACEUTICAL PRODUCT COMPLAINT [None]
  - PSYCHOTIC DISORDER [None]
  - SUICIDE ATTEMPT [None]
